FAERS Safety Report 7340512 (Version 5)
Quarter: 2014Q1

REPORT INFORMATION
  Report Type: Spontaneous
  Country: US (occurrence: US)
  Receive Date: 20100401
  Receipt Date: 20140131
  Transmission Date: 20141002
  Serious: Yes (Hospitalization, Other)
  Sender: FDA-Public Use
  Company Number: US-BAYER-201017901NA

PATIENT
  Age: 19 Year
  Sex: Female
  Weight: 98 kg

DRUGS (10)
  1. YASMIN [Suspect]
     Indication: CONTRACEPTION
     Dosage: UNK UNK, QD
     Route: 048
     Dates: start: 200803, end: 200908
  2. YASMIN [Suspect]
     Indication: PREMENSTRUAL SYNDROME
  3. YASMIN [Suspect]
     Indication: MENSTRUATION IRREGULAR
  4. OCELLA [Suspect]
     Indication: CONTRACEPTION
     Dosage: UNK
     Dates: start: 200803, end: 200908
  5. OCELLA [Suspect]
     Indication: PREMENSTRUAL DYSPHORIC DISORDER
  6. OCELLA [Suspect]
     Indication: MENSTRUATION IRREGULAR
  7. YAZ [Suspect]
     Indication: PRODUCT USED FOR UNKNOWN INDICATION
  8. TAMIFLU [Concomitant]
  9. AMOXICILLIN [Concomitant]
  10. VIRAL VACCINES [Concomitant]
     Dosage: UNK
     Dates: start: 20080303

REACTIONS (6)
  - Gallbladder disorder [None]
  - Cholecystitis chronic [None]
  - Biliary dyskinesia [None]
  - Abdominal pain upper [None]
  - Nausea [None]
  - Vomiting [None]
